FAERS Safety Report 6066084-2 (Version None)
Quarter: 2009Q1

REPORT INFORMATION
  Report Type: 
  Country: None (occurrence: None)
  Receive Date: 20090205
  Receipt Date: 20090130
  Transmission Date: 20090719
  Serious: Yes (Hospitalization)
  Sender: FDA-Public Use
  Company Number: DE-BAYER-200912492GPV

PATIENT
  Age: 71 Year
  Sex: Male
  Weight: 88 kg

DRUGS (4)
  1. SORAFENIB [Suspect]
     Indication: HEPATIC NEOPLASM MALIGNANT
     Dosage: TOTAL DAILY DOSE: 400 MG
     Route: 048
     Dates: start: 20080221, end: 20090123
  2. SPIRONOLACTONE [Concomitant]
     Indication: HYPERTENSION
     Route: 065
  3. PANTOPRAZOLE [Concomitant]
     Indication: DRUG USE FOR UNKNOWN INDICATION
     Route: 065
     Dates: start: 20080301
  4. BUDESONIDE [Concomitant]
     Indication: OBSTRUCTIVE AIRWAYS DISORDER
     Dosage: TOTAL DAILY DOSE: 0.2 MG
     Route: 055
     Dates: start: 20070101

REACTIONS (2)
  - NON-CARDIOGENIC PULMONARY OEDEMA [None]
  - PNEUMONIA [None]
